FAERS Safety Report 4436528-8 (Version None)
Quarter: 2004Q3

REPORT INFORMATION
  Report Type: 
  Country: None (occurrence: None)
  Receive Date: 20040830
  Receipt Date: 20040610
  Transmission Date: 20050211
  Serious: No
  Sender: FDA-Public Use
  Company Number: US-BRISTOL-MYERS SQUIBB COMPANY-12612305

PATIENT
  Age: 46 Year
  Sex: Female
  Weight: 57 kg

DRUGS (3)
  1. ABILIFY [Suspect]
     Indication: BIPOLAR DISORDER
     Dosage: INITIATED MAY OR JUNE 2003
     Route: 048
     Dates: start: 20030101
  2. ABILIFY [Suspect]
     Indication: BIPOLAR I DISORDER
     Dosage: INITIATED MAY OR JUNE 2003
     Route: 048
     Dates: start: 20030101
  3. LITHIUM [Concomitant]

REACTIONS (2)
  - LIBIDO INCREASED [None]
  - WEIGHT DECREASED [None]
